FAERS Safety Report 7547250-3 (Version None)
Quarter: 2011Q2

REPORT INFORMATION
  Report Type: 
  Country: None (occurrence: None)
  Receive Date: 20110614
  Receipt Date: 20101222
  Transmission Date: 20111010
  Serious: Yes (Death, Life-Threatening, Disabling, Other)
  Sender: FDA-Public Use
  Company Number: PHHY2010JP52223

PATIENT
  Sex: Male
  Weight: 59 kg

DRUGS (12)
  1. PLAVIX [Concomitant]
     Dosage: 75 MG, UNK
     Route: 048
     Dates: start: 20100611, end: 20100723
  2. AFINITOR [Suspect]
     Indication: METASTATIC RENAL CELL CARCINOMA
     Dosage: 10 MG, QD
     Route: 048
     Dates: start: 20100715, end: 20100723
  3. LANSOPRAZOLE [Concomitant]
     Dosage: 30 MG, UNK
     Route: 048
     Dates: start: 20100712, end: 20100723
  4. VITAMEDIN INTRAVENOUS [Concomitant]
     Dosage: 1 DF, UNK
     Route: 042
     Dates: start: 20100723, end: 20100723
  5. LAC B [Concomitant]
     Dosage: 3 G, UNK
     Route: 048
     Dates: start: 20100708, end: 20100723
  6. AFINITOR [Suspect]
     Indication: RENAL CELL CARCINOMA
     Dosage: UNK
     Route: 048
  7. LASIX [Concomitant]
     Dosage: 80 MG, UNK
     Route: 048
     Dates: start: 20100519, end: 20100723
  8. ASPIRIN [Concomitant]
     Dosage: 100 MG, UNK
     Route: 048
     Dates: start: 20091007, end: 20100723
  9. SOLITA T [Concomitant]
     Dosage: 1000 ML, UNK
     Route: 042
     Dates: start: 20100723, end: 20100723
  10. ALDACTONE [Concomitant]
     Dosage: 25 MG, UNK
     Route: 048
     Dates: start: 20100518, end: 20100723
  11. TAMSULOSIN HCL [Concomitant]
     Dosage: 0.2 MG, UNK
     Route: 048
     Dates: start: 20091204, end: 20100723
  12. NITOROL [Concomitant]
     Dosage: 2 DF, UNK
     Route: 048
     Dates: start: 20091007, end: 20100723

REACTIONS (9)
  - DEPRESSED LEVEL OF CONSCIOUSNESS [None]
  - PLEURAL EFFUSION [None]
  - ASPARTATE AMINOTRANSFERASE INCREASED [None]
  - BLOOD LACTATE DEHYDROGENASE INCREASED [None]
  - BLOOD UREA INCREASED [None]
  - NEOPLASM MALIGNANT [None]
  - PLATELET COUNT DECREASED [None]
  - BLOOD ALKALINE PHOSPHATASE INCREASED [None]
  - ANAEMIA [None]
